FAERS Safety Report 9526916 (Version 2)
Quarter: 2013Q3

REPORT INFORMATION
  Report Type: Spontaneous
  Country: IT (occurrence: IT)
  Receive Date: 20130916
  Receipt Date: 20130916
  Transmission Date: 20140515
  Serious: Yes (Other)
  Sender: FDA-Public Use
  Company Number: IT-BRISTOL-MYERS SQUIBB COMPANY-19072404

PATIENT
  Age: 46 Year
  Sex: Female

DRUGS (6)
  1. ERBITUX SOLN FOR INF [Suspect]
     Indication: ADENOCARCINOMA OF COLON
     Dosage: LAST DOSE: 22-APR-2013
     Route: 042
     Dates: start: 20130422
  2. FLUOROURACIL [Suspect]
     Indication: ADENOCARCINOMA OF COLON
     Dosage: ALSO ON 22APR13-18JUN13:680MG:IV BOLOUS:57DAYS CYCLICAL.INFUSION-ONG; LAST DOSE PRIOR EVNT: 23APR
     Route: 042
     Dates: start: 20130422
  3. IRINOTECAN [Suspect]
     Indication: ADENOCARCINOMA OF COLON
     Dosage: PREVIUOS THERAPY TO 18JUN13:57DAYS-ONG
     Route: 042
     Dates: start: 20130422
  4. SOLDESAM [Concomitant]
     Indication: PROPHYLAXIS OF NAUSEA AND VOMITING
     Dosage: INFUSION 8MG/2ML
     Route: 042
  5. ONDANSETRON [Concomitant]
     Indication: PROPHYLAXIS OF NAUSEA AND VOMITING
     Dosage: INFUSION 8MG/4ML
     Route: 042
  6. RANIDIL [Concomitant]
     Indication: HYPERCHLORHYDRIA
     Dosage: INFUSION 50MG/5ML
     Route: 042

REACTIONS (6)
  - Pyrexia [Unknown]
  - Pain [Unknown]
  - Epistaxis [Unknown]
  - Skin discolouration [Unknown]
  - Conjunctivitis [Unknown]
  - Diarrhoea [Unknown]
